FAERS Safety Report 10130003 (Version 2)
Quarter: 2014Q2

REPORT INFORMATION
  Report Type: Report from Study
  Country: HU (occurrence: HU)
  Receive Date: 20140428
  Receipt Date: 20140501
  Transmission Date: 20141212
  Serious: Yes (Hospitalization, Other)
  Sender: FDA-Public Use
  Company Number: PHHY2014HU049938

PATIENT
  Age: 84 Year
  Sex: Male

DRUGS (7)
  1. ONBREZ [Suspect]
     Indication: CHRONIC OBSTRUCTIVE PULMONARY DISEASE
     Dosage: 150 UG, QD
     Dates: start: 20110101
  2. ANTICOAGULANTS [Concomitant]
     Indication: ATRIAL FIBRILLATION
  3. ACENOCUMAROL [Concomitant]
     Dosage: UNK
  4. PERINDOPRIL [Concomitant]
     Dosage: UNK
  5. HYDROCHLOROTHIAZIDE [Concomitant]
     Dosage: UNK
  6. AMLODIPINE [Concomitant]
     Dosage: UNK
  7. BISOPROLOL [Concomitant]
     Dosage: UNK

REACTIONS (9)
  - Pulmonary embolism [Recovered/Resolved]
  - Haemoptysis [Recovered/Resolved]
  - Pulmonary infarction [Unknown]
  - Peripheral swelling [Recovered/Resolved]
  - Cough [Recovered/Resolved]
  - Dyspnoea [Unknown]
  - Hypoventilation [Unknown]
  - Pulmonary arterial pressure increased [Unknown]
  - General physical health deterioration [Recovered/Resolved]
